FAERS Safety Report 15207383 (Version 1)
Quarter: 2018Q3

REPORT INFORMATION
  Report Type: Spontaneous
  Country: IT (occurrence: IT)
  Receive Date: 20180727
  Receipt Date: 20180727
  Transmission Date: 20181010
  Serious: Yes (Hospitalization, Other)
  Sender: FDA-Public Use
  Company Number: IT-PFIZER INC-2018300872

PATIENT
  Age: 71 Year
  Sex: Male

DRUGS (5)
  1. RANEXA [Concomitant]
     Active Substance: RANOLAZINE
     Dosage: UNK
  2. CORDARONE [Suspect]
     Active Substance: AMIODARONE HYDROCHLORIDE
     Indication: ATRIAL FIBRILLATION
     Dosage: 1 DF, 1X/DAY (QD)
     Route: 065
     Dates: start: 20180101, end: 20180508
  3. GIANT [Concomitant]
     Active Substance: AMLODIPINE BESYLATE\OLMESARTAN MEDOXOMIL
     Dosage: UNK
  4. XARELTO [Concomitant]
     Active Substance: RIVAROXABAN
     Dosage: UNK
  5. ATENOLOL. [Concomitant]
     Active Substance: ATENOLOL
     Dosage: UNK

REACTIONS (4)
  - Acute respiratory failure [Unknown]
  - Productive cough [Unknown]
  - Haemoptysis [Unknown]
  - Nocturnal dyspnoea [Unknown]

NARRATIVE: CASE EVENT DATE: 20180508
